FAERS Safety Report 6305937-4 (Version None)
Quarter: 2009Q3

REPORT INFORMATION
  Report Type: 
  Country: None (occurrence: None)
  Receive Date: 20090812
  Receipt Date: 20090731
  Transmission Date: 20100115
  Serious: Yes (Death, Hospitalization, Other)
  Sender: FDA-Public Use
  Company Number: FR-PFIZER INC-2009180588

PATIENT
  Age: 75 Year

DRUGS (1)
  1. SUTENT [Suspect]
     Indication: RENAL CANCER METASTATIC
     Dosage: 37.5 MG, 1X/DAY
     Dates: start: 20081001

REACTIONS (10)
  - ANXIETY [None]
  - CEREBROVASCULAR ACCIDENT [None]
  - CONFUSIONAL STATE [None]
  - CSF PROTEIN INCREASED [None]
  - DISEASE PROGRESSION [None]
  - MENINGITIS [None]
  - PULMONARY EMBOLISM [None]
  - PYREXIA [None]
  - QUADRIPARESIS [None]
  - RESPIRATORY DISTRESS [None]
